FAERS Safety Report 20744361 (Version 1)
Quarter: 2022Q2

REPORT INFORMATION
  Report Type: Spontaneous
  Country: US (occurrence: US)
  Receive Date: 20220425
  Receipt Date: 20220425
  Transmission Date: 20220721
  Serious: No
  Sender: FDA-Public Use
  Company Number: US-IGSA-BIG0018346

PATIENT
  Sex: Female
  Weight: 48.5 kg

DRUGS (14)
  1. XEMBIFY [Suspect]
     Active Substance: HUMAN IMMUNOGLOBULIN G
     Indication: Immunodeficiency common variable
     Dosage: 8 GRAM, Q.WK.
     Route: 058
     Dates: start: 2021
  2. PLAQUENIL [Concomitant]
     Active Substance: HYDROXYCHLOROQUINE SULFATE
     Dosage: 200 MILLIGRAM, QD
     Route: 048
  3. LEFLUNOMIDE [Concomitant]
     Active Substance: LEFLUNOMIDE
     Dosage: 20 MILLIGRAM, QD
     Route: 048
  4. FLUOXETINE HYDROCHLORIDE [Concomitant]
     Active Substance: FLUOXETINE HYDROCHLORIDE
     Dosage: 90 MILLIGRAM, QD
     Route: 048
  5. BUSPAR [Concomitant]
     Active Substance: BUSPIRONE HYDROCHLORIDE
     Dosage: 5 MILLIGRAM, QD
     Route: 048
  6. PREDNISONE [Concomitant]
     Active Substance: PREDNISONE
     Dosage: 7.5 MILLIGRAM, QD
     Route: 048
  7. LYRICA [Concomitant]
     Active Substance: PREGABALIN
     Dosage: 75 MILLIGRAM, QD
     Route: 048
  8. CRESTOR [Concomitant]
     Active Substance: ROSUVASTATIN CALCIUM
     Dosage: 10 MILLIGRAM, QD
     Route: 048
  9. AZELASTINE [Concomitant]
     Active Substance: AZELASTINE
     Dosage: UNK UNK, PRN
  10. FLUTICASONE PROPIONATE [Concomitant]
     Active Substance: FLUTICASONE PROPIONATE
     Dosage: UNK
  11. PRUCALOPRIDE [Concomitant]
     Active Substance: PRUCALOPRIDE
     Dosage: 2 MILLIGRAM, QD
     Route: 048
  12. MYRBETRIQ [Concomitant]
     Active Substance: MIRABEGRON
     Dosage: 50 MILLIGRAM, QD
     Route: 048
  13. CYTOTEC [Concomitant]
     Active Substance: MISOPROSTOL
     Dosage: 200 MICROGRAM, TID
     Route: 048
  14. ORENCIA [Concomitant]
     Active Substance: ABATACEPT
     Dosage: 500 MILLIGRAM, Q.M.T.
     Route: 042

REACTIONS (2)
  - Infusion site oedema [Unknown]
  - Infusion site haemorrhage [Unknown]

NARRATIVE: CASE EVENT DATE: 20210101
